FAERS Safety Report 5962705-0 (Version None)
Quarter: 2008Q4

REPORT INFORMATION
  Report Type: 
  Country: None (occurrence: None)
  Receive Date: 20081124
  Receipt Date: 20081113
  Transmission Date: 20090506
  Serious: Yes (Hospitalization)
  Sender: FDA-Public Use
  Company Number: JP-JNJFOC-20081104612

PATIENT
  Sex: Female
  Weight: 38 kg

DRUGS (12)
  1. FENTANYL CITRATE [Suspect]
     Indication: CANCER PAIN
     Route: 062
  2. LIVER PROTECTION DRUG [Suspect]
     Indication: DRUG USE FOR UNKNOWN INDICATION
     Route: 041
  3. CELESTAMINE TAB [Concomitant]
     Indication: URTICARIA
     Route: 048
  4. FAMOTIDINE [Concomitant]
     Indication: GASTROINTESTINAL DISORDER
     Route: 048
  5. MUCOSTA [Concomitant]
     Indication: GASTROINTESTINAL DISORDER
     Route: 048
  6. GASMOTIN [Concomitant]
     Indication: GASTROINTESTINAL DISORDER
     Route: 048
  7. DEPAS [Concomitant]
     Indication: INSOMNIA
     Route: 048
  8. GARASONE [Concomitant]
     Indication: RASH ERYTHEMATOUS
     Route: 061
  9. RESTAMIN [Concomitant]
     Indication: ERYTHEMA
     Route: 061
  10. PREDONINE [Concomitant]
     Route: 042
  11. PREDONINE [Concomitant]
     Indication: ERYTHEMA
     Route: 042
  12. UNKNOWN MEDICATION [Concomitant]
     Route: 042

REACTIONS (3)
  - ERYTHEMA [None]
  - PRURITUS [None]
  - RASH [None]
